FAERS Safety Report 5918574-8 (Version None)
Quarter: 2008Q4

REPORT INFORMATION
  Report Type: 
  Country: None (occurrence: None)
  Receive Date: 20081007
  Receipt Date: 20081007
  Transmission Date: 20090506
  Serious: Yes (Other)
  Sender: FDA-Public Use
  Company Number: None

PATIENT
  Sex: Male
  Weight: 80 kg

DRUGS (2)
  1. DARUNAVIR 300MG TABLET TIBOTEC [Suspect]
     Dosage: 600MG PO TWICE DAILY
     Route: 048
     Dates: start: 20080921, end: 20080927
  2. RITONAVIR 100MG CAPSULE ABBOTT [Suspect]
     Dosage: 100MG PO TWICE DAILY
     Route: 048
     Dates: start: 20080921, end: 20080927

REACTIONS (3)
  - DRUG INTERACTION [None]
  - RASH MORBILLIFORM [None]
  - RASH PRURITIC [None]
